FAERS Safety Report 24879850 (Version 1)
Quarter: 2025Q1

REPORT INFORMATION
  Report Type: Report from Study
  Country: US (occurrence: US)
  Receive Date: 20250123
  Receipt Date: 20250123
  Transmission Date: 20250408
  Serious: Yes (Other)
  Sender: EMD SERONO INC
  Company Number: US-Merck Healthcare KGaA-2024068450

PATIENT
  Age: 67 Year
  Sex: Male

DRUGS (2)
  1. REBIF [Suspect]
     Active Substance: INTERFERON BETA-1A
     Indication: Multiple sclerosis
     Dates: start: 20020530, end: 20221130
  2. REBIF [Suspect]
     Active Substance: INTERFERON BETA-1A
     Dates: start: 20230331

REACTIONS (2)
  - Pulmonary hypertension [Unknown]
  - Hypertension [Unknown]
